FAERS Safety Report 7292532-6 (Version None)
Quarter: 2011Q1

REPORT INFORMATION
  Report Type: 
  Country: None (occurrence: None)
  Receive Date: 20110215
  Receipt Date: 20110203
  Transmission Date: 20110831
  Serious: Yes (Death, Hospitalization, Other)
  Sender: FDA-Public Use
  Company Number: PL-CELGENEUS-129-21880-10102844

PATIENT
  Sex: Male

DRUGS (8)
  1. POLPRAZOL [Concomitant]
     Route: 065
  2. PLAVIX [Concomitant]
     Route: 048
  3. REVLIMID [Suspect]
     Indication: MULTIPLE MYELOMA
     Route: 048
     Dates: start: 20100210
  4. REVLIMID [Suspect]
     Route: 048
     Dates: end: 20101020
  5. DEXAMETHASONE [Suspect]
     Indication: MULTIPLE MYELOMA
     Route: 065
     Dates: start: 20100210
  6. TRANSTEC TTS [Concomitant]
     Route: 062
  7. MILURIT [Concomitant]
     Route: 065
  8. DEXAMETHASONE [Suspect]
     Route: 065
     Dates: start: 20100401

REACTIONS (7)
  - CIRCULATORY COLLAPSE [None]
  - DEATH [None]
  - INSOMNIA [None]
  - ATRIAL TACHYCARDIA [None]
  - MULTIPLE MYELOMA [None]
  - THROMBOSIS [None]
  - AGITATION [None]
